FAERS Safety Report 4731477-X (Version None)
Quarter: 2005Q3

REPORT INFORMATION
  Report Type: 
  Country: None (occurrence: None)
  Receive Date: 20050801
  Receipt Date: 20050801
  Transmission Date: 20060218
  Serious: Yes (Hospitalization, Other)
  Sender: FDA-Public Use
  Company Number: None

PATIENT
  Sex: Female
  Weight: 50.2 kg

DRUGS (3)
  1. DAUNOMYCIN [Suspect]
     Indication: ACUTE MYELOID LEUKAEMIA
     Dosage: SEE IMAGE
     Route: 042
     Dates: start: 20050705
  2. GEMTUZUMAB OZOGAMICIN [Suspect]
     Dosage: SEE IMAGE
     Route: 042
     Dates: start: 20020708, end: 20050708
  3. GEMTUZUMAB OZOGAMICIN [Suspect]
     Dosage: SEE IMAGE
     Route: 042
     Dates: start: 20050705

REACTIONS (1)
  - PYREXIA [None]
